FAERS Safety Report 7745597-9 (Version None)
Quarter: 2011Q3

REPORT INFORMATION
  Report Type: 
  Country: None (occurrence: None)
  Receive Date: 20110908
  Receipt Date: 20110831
  Transmission Date: 20111222
  Serious: Yes (Hospitalization)
  Sender: FDA-Public Use
  Company Number: 2011MA012920

PATIENT
  Age: 43 Year
  Sex: Female

DRUGS (1)
  1. SPIRONOLACTONE TABLETS USP, 100 MG (PUREPAC) (SPIRONOLACTONE) [Suspect]

REACTIONS (2)
  - RASH [None]
  - CHOLESTASIS [None]
